FAERS Safety Report 5314347-8 (Version None)
Quarter: 2007Q2

REPORT INFORMATION
  Report Type: 
  Country: None (occurrence: None)
  Receive Date: 20070502
  Receipt Date: 20070423
  Transmission Date: 20071010
  Serious: Yes (Other)
  Sender: FDA-Public Use
  Company Number: CA-JNJFOC-20070201027

PATIENT
  Sex: Female

DRUGS (18)
  1. REMICADE [Suspect]
     Route: 042
  2. REMICADE [Suspect]
     Route: 042
  3. REMICADE [Suspect]
     Route: 042
  4. REMICADE [Suspect]
     Route: 042
  5. REMICADE [Suspect]
     Route: 042
  6. REMICADE [Suspect]
     Indication: RHEUMATOID ARTHRITIS
     Route: 042
  7. PREDNISONE TAB [Concomitant]
  8. METHOTREXATE [Concomitant]
  9. PREMARIN [Concomitant]
  10. PANTOPRAZOLE SODIUM [Concomitant]
  11. NOVASEN [Concomitant]
  12. CALCIUM + VITAMIN D [Concomitant]
  13. FOLIC ACID [Concomitant]
  14. VENTOLIN [Concomitant]
  15. FLOVENT [Concomitant]
  16. ARTHROTEC [Concomitant]
  17. INTAL [Concomitant]
  18. SALOSOPYRIN [Concomitant]

REACTIONS (2)
  - HYPOAESTHESIA [None]
  - PAIN IN EXTREMITY [None]
